FAERS Safety Report 17174342 (Version 1)
Quarter: 2019Q4

REPORT INFORMATION
  Report Type: Spontaneous
  Country: AU (occurrence: AU)
  Receive Date: 20191219
  Receipt Date: 20191219
  Transmission Date: 20200122
  Serious: Yes (Hospitalization, Other)
  Sender: FDA-Public Use
  Company Number: AU-MYLANLABS-2019M1124631

PATIENT
  Age: 35 Year
  Sex: Female

DRUGS (13)
  1. CLOZARIL [Suspect]
     Active Substance: CLOZAPINE
     Indication: SCHIZOPHRENIA
     Dosage: 350 MILLIGRAM, PM
     Route: 048
     Dates: start: 20150605
  2. FERROTAB                           /00023505/ [Concomitant]
     Dosage: 200 MILLIGRAM
  3. PALIPERIDONE. [Concomitant]
     Active Substance: PALIPERIDONE
     Dosage: 150 MILLIGRAM, 3/52
  4. DIAZEPAM. [Concomitant]
     Active Substance: DIAZEPAM
     Dosage: 2.5 MILLIGRAM, PM
  5. ATROPINE. [Concomitant]
     Active Substance: ATROPINE
  6. CLOZARIL [Suspect]
     Active Substance: CLOZAPINE
     Dosage: UNK
  7. METFORMIN [Concomitant]
     Active Substance: METFORMIN HYDROCHLORIDE
     Dosage: 1 GRAM, PM
  8. LAMOTRIGINE. [Concomitant]
     Active Substance: LAMOTRIGINE
     Dosage: 25 MILLIGRAM, AM
  9. LAMOTRIGINE. [Concomitant]
     Active Substance: LAMOTRIGINE
     Dosage: 10 MILLIGRAM, PM
  10. OLANZAPINE. [Concomitant]
     Active Substance: OLANZAPINE
     Dosage: 10 MILLIGRAM, BID
  11. VENLAFAXINE [Concomitant]
     Active Substance: VENLAFAXINE HYDROCHLORIDE
     Dosage: 150 MILLIGRAM, AM
  12. LACTULOSE. [Concomitant]
     Active Substance: LACTULOSE
     Dosage: 20 MILLIGRAM, PM
  13. FLUOXETINE [Concomitant]
     Active Substance: FLUOXETINE HYDROCHLORIDE
     Dosage: 40 MILLIGRAM, AM

REACTIONS (8)
  - Psychotic symptom [Unknown]
  - Neutropenia [Recovered/Resolved]
  - Ocular hyperaemia [Recovered/Resolved]
  - Suicidal ideation [Unknown]
  - Hallucination, auditory [Unknown]
  - Schizophrenia [Unknown]
  - Eye swelling [Recovered/Resolved]
  - Hypersensitivity [Recovered/Resolved]

NARRATIVE: CASE EVENT DATE: 201601
